FAERS Safety Report 15085146 (Version 1)
Quarter: 2018Q2

REPORT INFORMATION
  Report Type: Report from Study
  Country: FR (occurrence: FR)
  Receive Date: 20180628
  Receipt Date: 20180628
  Transmission Date: 20180711
  Serious: Yes (Other)
  Sender: FDA-Public Use
  Company Number: FR-VIIV HEALTHCARE LIMITED-FR2018110732

PATIENT
  Age: 25 Year
  Sex: Female

DRUGS (17)
  1. SELZENTRY [Suspect]
     Active Substance: MARAVIROC
     Indication: PERSISTENT GENERALISED LYMPHADENOPATHY
  2. ISENTRESS [Suspect]
     Active Substance: RALTEGRAVIR POTASSIUM
     Indication: PERSISTENT GENERALISED LYMPHADENOPATHY
     Dosage: 800 MG, QD
     Route: 048
     Dates: start: 20120524
  3. PREZISTA [Suspect]
     Active Substance: DARUNAVIR ETHANOLATE
     Indication: PERSISTENT GENERALISED LYMPHADENOPATHY
  4. ALUVIA [Suspect]
     Active Substance: LOPINAVIR\RITONAVIR
     Indication: PERSISTENT GENERALISED LYMPHADENOPATHY
     Dosage: 2 DF, QD
     Route: 048
     Dates: start: 20120220, end: 20120524
  5. KALETRA [Suspect]
     Active Substance: LOPINAVIR\RITONAVIR
     Indication: ACUTE HIV INFECTION
     Dosage: 2 DF, QD
     Route: 048
     Dates: start: 20120220, end: 20120524
  6. NORVIR [Suspect]
     Active Substance: RITONAVIR
     Indication: ACUTE HIV INFECTION
  7. ABACAVIR SULFATE + LAMIVUDINE [Suspect]
     Active Substance: ABACAVIR SULFATE\LAMIVUDINE
     Indication: ACUTE HIV INFECTION
     Dosage: 1 DF, QD
     Route: 048
     Dates: start: 20120220, end: 20120319
  8. PREZISTA [Suspect]
     Active Substance: DARUNAVIR ETHANOLATE
     Indication: ACUTE HIV INFECTION
     Dosage: 800 MG, QD
     Route: 048
     Dates: start: 20100713, end: 20111108
  9. ISENTRESS [Suspect]
     Active Substance: RALTEGRAVIR POTASSIUM
     Indication: ACUTE HIV INFECTION
     Dosage: 800 MG, QD
     Route: 048
     Dates: start: 20100713, end: 20111108
  10. KALETRA [Suspect]
     Active Substance: LOPINAVIR\RITONAVIR
     Indication: PERSISTENT GENERALISED LYMPHADENOPATHY
  11. COMBIVIR [Suspect]
     Active Substance: LAMIVUDINE\ZIDOVUDINE
     Indication: ACUTE HIV INFECTION
     Dosage: 2 DF, QD
     Route: 048
     Dates: start: 20120319, end: 20120524
  12. SELZENTRY [Suspect]
     Active Substance: MARAVIROC
     Indication: ACUTE HIV INFECTION
     Dosage: 300 MG, QD
     Route: 048
     Dates: start: 20100713, end: 20111108
  13. TRUVADA [Suspect]
     Active Substance: EMTRICITABINE\TENOFOVIR DISOPROXIL FUMARATE
     Indication: ACUTE HIV INFECTION
     Dosage: 1 DF, QD
     Route: 048
     Dates: start: 20120524
  14. ALUVIA [Suspect]
     Active Substance: LOPINAVIR\RITONAVIR
     Indication: ACUTE HIV INFECTION
  15. TRUVADA [Suspect]
     Active Substance: EMTRICITABINE\TENOFOVIR DISOPROXIL FUMARATE
     Indication: PERSISTENT GENERALISED LYMPHADENOPATHY
     Dosage: 1 DF, QD
     Route: 048
  16. NORVIR [Suspect]
     Active Substance: RITONAVIR
     Indication: PERSISTENT GENERALISED LYMPHADENOPATHY
     Dosage: 100 MG, QD
     Route: 048
     Dates: start: 20100713, end: 20111108
  17. CELSENTRI [Suspect]
     Active Substance: MARAVIROC
     Indication: ACUTE HIV INFECTION
     Dosage: 300 MG, QD
     Route: 048
     Dates: start: 20100713, end: 20111108

REACTIONS (4)
  - Toxoplasmosis [Unknown]
  - Exposure during pregnancy [Recovered/Resolved]
  - Premature delivery [Unknown]
  - Cholestasis of pregnancy [Recovered/Resolved]

NARRATIVE: CASE EVENT DATE: 20120606
